FAERS Safety Report 16555368 (Version 1)
Quarter: 2019Q3

REPORT INFORMATION
  Report Type: Spontaneous
  Country: RU (occurrence: RU)
  Receive Date: 20190710
  Receipt Date: 20190710
  Transmission Date: 20191004
  Serious: Yes (Death, Other)
  Sender: FDA-Public Use
  Company Number: RU-FRESENIUS KABI-FK201907526

PATIENT
  Age: 41 Year
  Sex: Male

DRUGS (5)
  1. DEXAMETHASONE INJECTION (MANUFACTURER UNKNOWN) [Suspect]
     Active Substance: DEXAMETHASONE
     Indication: MULTIPLE SCLEROSIS
     Route: 030
     Dates: start: 2016
  2. NATALIZUMAB [Suspect]
     Active Substance: NATALIZUMAB
     Dosage: RECEIVED 17 INFUSIONS
     Route: 065
     Dates: start: 201608, end: 201712
  3. NATALIZUMAB [Suspect]
     Active Substance: NATALIZUMAB
     Dosage: RECEIVED REGULAR INFUSION
     Route: 065
     Dates: start: 20171220
  4. NATALIZUMAB [Suspect]
     Active Substance: NATALIZUMAB
     Indication: MULTIPLE SCLEROSIS
     Dosage: RECEIVED 10 INFUSIONS
     Route: 065
     Dates: start: 2012
  5. PREDNISOLONE. [Suspect]
     Active Substance: PREDNISOLONE
     Indication: MULTIPLE SCLEROSIS
     Route: 048
     Dates: start: 2016

REACTIONS (4)
  - Brain oedema [Fatal]
  - Product use in unapproved indication [Unknown]
  - Prescription drug used without a prescription [Unknown]
  - Progressive multifocal leukoencephalopathy [Fatal]

NARRATIVE: CASE EVENT DATE: 20180117
